FAERS Safety Report 13069601 (Version 2)
Quarter: 2017Q1

REPORT INFORMATION
  Report Type: Report from Study
  Country: CZ (occurrence: CZ)
  Receive Date: 20161228
  Receipt Date: 20170113
  Transmission Date: 20170428
  Serious: Yes (Hospitalization, Other)
  Sender: FDA-Public Use
  Company Number: CZ-BAYER-2016-244342

PATIENT
  Age: 20 Year
  Sex: Female

DRUGS (1)
  1. JAYDESS [Suspect]
     Active Substance: LEVONORGESTREL
     Dosage: 14 MCG/24HR, CONT
     Route: 015
     Dates: start: 20151110, end: 20160920

REACTIONS (13)
  - Ovarian cyst ruptured [Recovered/Resolved]
  - Ovarian enlargement [Recovered/Resolved]
  - Coital bleeding [Recovered/Resolved]
  - Genital haemorrhage [Recovered/Resolved]
  - Uterine pain [Recovered/Resolved]
  - Metrorrhagia [Recovered/Resolved]
  - Device use issue [None]
  - Device expulsion [Recovered/Resolved]
  - Vaginal haemorrhage [Recovered/Resolved]
  - Abdominal pain lower [Recovered/Resolved]
  - Vulvovaginal burning sensation [Recovered/Resolved]
  - Vulvovaginal warts [Recovered/Resolved]
  - Dyspareunia [Recovered/Resolved]

NARRATIVE: CASE EVENT DATE: 201511
